FAERS Safety Report 4861957-8 (Version None)
Quarter: 2005Q4

REPORT INFORMATION
  Report Type: 
  Country: None (occurrence: None)
  Receive Date: 20051130
  Receipt Date: 20050418
  Transmission Date: 20060501
  Serious: Yes (Other)
  Sender: FDA-Public Use
  Company Number: PHEH2005US04510

PATIENT
  Age: 17 Year
  Sex: Female

DRUGS (2)
  1. LAMISIL [Suspect]
     Indication: NAIL TINEA
     Dosage: 250 MG, QD, ORAL
     Route: 048
     Dates: start: 20050411, end: 20050415
  2. PENLAC [Suspect]
     Dosage: TOPICAL
     Route: 061

REACTIONS (1)
  - RASH GENERALISED [None]
